FAERS Safety Report 9195751 (Version 3)
Quarter: 2013Q4

REPORT INFORMATION
  Report Type: Spontaneous
  Country: US (occurrence: None)
  Receive Date: 20120703
  Receipt Date: 20131226
  Transmission Date: 20140711
  Serious: Yes (Other)
  Sender: FDA-Public Use
  Company Number: PHEH2012US007037

PATIENT
  Sex: Female

DRUGS (3)
  1. GILENYA [Suspect]
     Indication: MULTIPLE SCLEROSIS
     Route: 048
     Dates: start: 20111025
  2. TYPHOID VACCINE [Suspect]
  3. HEPATITIS VACCINE NOS [Concomitant]

REACTIONS (3)
  - Gait disturbance [None]
  - Inappropriate schedule of drug administration [None]
  - Vaccination error [None]
